FAERS Safety Report 8196817-0 (Version None)
Quarter: 2012Q1

REPORT INFORMATION
  Report Type: 
  Country: None (occurrence: None)
  Receive Date: 20120309
  Receipt Date: 20120306
  Transmission Date: 20120608
  Serious: Yes (Congenital Anomaly, Other)
  Sender: FDA-Public Use
  Company Number: GB-PFIZER INC-GB-WYE-G03476909

PATIENT
  Age: 12 Week
  Sex: Male

DRUGS (7)
  1. EFFEXOR [Suspect]
     Indication: BIPOLAR DISORDER
     Dosage: 150 MG (FREQUENCY UNSPECIFIED)
     Route: 064
     Dates: start: 20050624
  2. AMOXICILLIN [Suspect]
     Dosage: 250 MG, 3X/DAY
     Route: 064
     Dates: start: 20080707, end: 20080714
  3. CODEINE [Suspect]
     Dosage: 30 MG, 1X/PM
     Route: 064
  4. FERROUS SULFATE TAB [Suspect]
     Dosage: 200 MG, 2X/DAY
     Route: 064
  5. LITHIUM CARBONATE [Suspect]
     Indication: BIPOLAR DISORDER
     Dosage: 1200 MG (FREQUENCY UNSPECIFIED)
     Route: 064
     Dates: start: 20050101
  6. REBOXETINE [Suspect]
     Indication: BIPOLAR DISORDER
     Dosage: 4 MG (FREQUENCY UNSPECIFIED)
     Route: 064
     Dates: start: 20050101, end: 20080529
  7. QUETIAPINE [Suspect]
     Indication: BIPOLAR DISORDER
     Dosage: 100 MG (FREQUENCY UNSPECIFIED)
     Route: 064
     Dates: start: 20080421, end: 20080616

REACTIONS (2)
  - MATERNAL EXPOSURE DURING PREGNANCY [None]
  - PIERRE ROBIN SYNDROME [None]
